FAERS Safety Report 7995497-4 (Version None)
Quarter: 2011Q4

REPORT INFORMATION
  Report Type: 
  Country: None (occurrence: None)
  Receive Date: 20111220
  Receipt Date: 20111216
  Transmission Date: 20120403
  Serious: No
  Sender: FDA-Public Use
  Company Number: US-PFIZER INC-2011306846

PATIENT
  Sex: Female

DRUGS (1)
  1. VENLAFAXINE HCL [Suspect]
     Indication: HOT FLUSH
     Dosage: 75 MG, 1X/DAY
     Route: 048
     Dates: start: 20111215, end: 20111216

REACTIONS (3)
  - NAUSEA [None]
  - MALAISE [None]
  - FEELING ABNORMAL [None]
